FAERS Safety Report 10072054 (Version 2)
Quarter: 2014Q2

REPORT INFORMATION
  Report Type: Spontaneous
  Country: US (occurrence: US)
  Receive Date: 20140411
  Receipt Date: 20140414
  Transmission Date: 20141212
  Serious: No
  Sender: FDA-Public Use
  Company Number: US-009507513-1404USA005100

PATIENT
  Age: 58 Year
  Sex: Male

DRUGS (3)
  1. PEGINTRON [Suspect]
     Indication: HEPATITIS C
     Dosage: 120 MICROGRAM, QW
     Route: 058
  2. REBETOL [Suspect]
     Indication: HEPATITIS C
     Dosage: 1000 MG DAILY (600MG IN THE MORNING AND 400MG IN THE EVENING)
     Route: 048
  3. SOVALDI [Suspect]
     Indication: HEPATITIS C
     Dosage: UNK

REACTIONS (2)
  - Hepatic pain [Not Recovered/Not Resolved]
  - Vomiting [Not Recovered/Not Resolved]
